FAERS Safety Report 17946445 (Version 2)
Quarter: 2020Q3

REPORT INFORMATION
  Report Type: Report from Study
  Country: None (occurrence: US)
  Receive Date: 20200626
  Receipt Date: 20200723
  Transmission Date: 20201103
  Serious: Yes (Hospitalization, Other)
  Sender: FDA-Public Use
  Company Number: US-ABBVIE-20K-163-3458428-00

PATIENT
  Age: 37 Year
  Sex: Female

DRUGS (2)
  1. ORILISSA [Suspect]
     Active Substance: ELAGOLIX SODIUM
     Route: 048
     Dates: start: 20200708, end: 202007
  2. ORILISSA [Suspect]
     Active Substance: ELAGOLIX SODIUM
     Indication: PRODUCT USED FOR UNKNOWN INDICATION
     Route: 048
     Dates: start: 20200614, end: 20200620

REACTIONS (8)
  - Medical procedure [Recovering/Resolving]
  - Abdominal pain [Unknown]
  - Vomiting [Recovering/Resolving]
  - Abscess [Unknown]
  - Salpingectomy [Unknown]
  - Nausea [Recovering/Resolving]
  - Post procedural infection [Recovering/Resolving]
  - Oophorectomy [Unknown]

NARRATIVE: CASE EVENT DATE: 2020
